FAERS Safety Report 7839987-3 (Version None)
Quarter: 2011Q4

REPORT INFORMATION
  Report Type: 
  Country: None (occurrence: None)
  Receive Date: 20111025
  Receipt Date: 20111020
  Transmission Date: 20120403
  Serious: No
  Sender: FDA-Public Use
  Company Number: US-BIOGENIDEC-2011BI040219

PATIENT
  Sex: Female

DRUGS (1)
  1. AVONEX [Suspect]
     Indication: MULTIPLE SCLEROSIS
     Route: 030
     Dates: start: 19980321

REACTIONS (4)
  - SKIN INDURATION [None]
  - SPIDER VEIN [None]
  - INJECTION SITE HAEMATOMA [None]
  - INJECTION SITE PAIN [None]
